FAERS Safety Report 7268349-5 (Version None)
Quarter: 2011Q1

REPORT INFORMATION
  Report Type: 
  Country: None (occurrence: None)
  Receive Date: 20110121
  Receipt Date: 20110110
  Transmission Date: 20110831
  Serious: Yes (Other)
  Sender: FDA-Public Use
  Company Number: TR-001276

PATIENT
  Age: 5 Year
  Sex: Male
  Weight: 15 kg

DRUGS (3)
  1. NAGLAZYME [Suspect]
     Indication: MUCOPOLYSACCHARIDOSIS VI
     Dosage: SEE IMAGE
     Route: 041
  2. NAGLAZYME [Suspect]
     Indication: MUCOPOLYSACCHARIDOSIS VI
     Dosage: SEE IMAGE
     Route: 041
  3. DIPHENHYDRAMINE [Concomitant]

REACTIONS (2)
  - URINE ANALYSIS ABNORMAL [None]
  - THROMBOCYTOPENIA [None]
